FAERS Safety Report 8435346-3 (Version None)
Quarter: 2012Q2

REPORT INFORMATION
  Report Type: 
  Country: None (occurrence: None)
  Receive Date: 20120614
  Receipt Date: 20120605
  Transmission Date: 20120825
  Serious: Yes (Hospitalization, Other)
  Sender: FDA-Public Use
  Company Number: US-JNJFOC-20120404278

PATIENT
  Sex: Female
  Weight: 61.2 kg

DRUGS (16)
  1. ENALAPRIL MALEATE [Concomitant]
  2. ATIVAN [Concomitant]
     Route: 048
     Dates: start: 20090807
  3. EFFEXOR XR [Concomitant]
     Route: 048
     Dates: start: 20110726
  4. ULTRAM [Concomitant]
     Route: 048
     Dates: start: 20090804
  5. ALBUTEROL [Concomitant]
     Route: 055
     Dates: start: 20100112
  6. ASPIRIN [Concomitant]
     Route: 048
     Dates: start: 20120424
  7. CARDIZEM [Concomitant]
     Route: 048
     Dates: start: 20091214
  8. ADVAIR DISKUS 100/50 [Concomitant]
     Route: 055
     Dates: start: 20110419
  9. XARELTO [Suspect]
     Indication: ATRIAL FIBRILLATION
     Route: 048
     Dates: start: 20120221, end: 20120407
  10. ALBUTEROL [Concomitant]
     Indication: WHEEZING
     Route: 048
     Dates: start: 20110405
  11. XARELTO [Suspect]
     Indication: CEREBROVASCULAR ACCIDENT PROPHYLAXIS
     Route: 048
     Dates: start: 20120221, end: 20120407
  12. ASPIRIN [Concomitant]
     Route: 048
     Dates: start: 20120407, end: 20120420
  13. HYDROCHLOROTHIAZIDE [Concomitant]
     Route: 048
     Dates: start: 20100928
  14. GLUCOPHAGE [Concomitant]
     Dosage: WITH MEALS
     Route: 048
     Dates: start: 20090825
  15. MIRTAZAPINE [Concomitant]
  16. DIGOXIN [Concomitant]

REACTIONS (7)
  - ABDOMINAL PAIN [None]
  - CARDIAC TAMPONADE [None]
  - HYPOTENSION [None]
  - CHEST PAIN [None]
  - DYSPNOEA [None]
  - PERICARDIAL HAEMORRHAGE [None]
  - GASTROINTESTINAL HAEMORRHAGE [None]
